FAERS Safety Report 25207730 (Version 2)
Quarter: 2025Q2

REPORT INFORMATION
  Report Type: Report from Study
  Country: US (occurrence: US)
  Receive Date: 20250417
  Receipt Date: 20250506
  Transmission Date: 20250716
  Serious: Yes (Hospitalization, Other)
  Sender: GILEAD
  Company Number: US-GILEAD-2025-0710482

PATIENT
  Age: 29 Year
  Sex: Male

DRUGS (9)
  1. AZTREONAM LYSINE [Suspect]
     Active Substance: AZTREONAM LYSINE
     Indication: Cystic fibrosis lung
     Dosage: 75 MG, TID (EVERY OTHER MONTH)
     Route: 055
     Dates: start: 20220123
  2. AZTREONAM LYSINE [Suspect]
     Active Substance: AZTREONAM LYSINE
     Dosage: 75 MG, TID ( INHALE 75MG INTO THE LUNGS VIA NEBULIZER THREE TIMES DAILY EVERY OTHER MONTH)
     Route: 055
     Dates: start: 20240423
  3. TOBRAMYCIN [Suspect]
     Active Substance: TOBRAMYCIN
     Indication: Product used for unknown indication
     Route: 065
  4. TRIKAFTA [Suspect]
     Active Substance: ELEXACAFTOR\IVACAFTOR\TEZACAFTOR
     Indication: Product used for unknown indication
     Route: 065
  5. ALBUTEROL [Concomitant]
     Active Substance: ALBUTEROL
  6. SODIUM CHLORIDE [Concomitant]
     Active Substance: SODIUM CHLORIDE
  7. VITAMINS\ZINC [Concomitant]
     Active Substance: VITAMINS\ZINC
  8. PULMOZYME [Concomitant]
     Active Substance: DORNASE ALFA
  9. ZENPEP [Concomitant]
     Active Substance: PANCRELIPASE AMYLASE\PANCRELIPASE LIPASE\PANCRELIPASE PROTEASE

REACTIONS (5)
  - Aneurysm [Not Recovered/Not Resolved]
  - Brain oedema [Not Recovered/Not Resolved]
  - Sleep disorder [Not Recovered/Not Resolved]
  - Loss of personal independence in daily activities [Unknown]
  - Social problem [Unknown]

NARRATIVE: CASE EVENT DATE: 20250401
